FAERS Safety Report 8619112 (Version 3)
Quarter: 2012Q4

REPORT INFORMATION
  Report Type: 
  Country: BR (occurrence: BR)
  Receive Date: 20120618
  Receipt Date: 20121213
  Transmission Date: 20130627
  Serious: Yes (Hospitalization)
  Sender: FDA-Public Use
  Company Number: US-ASTRAZENECA-2012SE39228

PATIENT
  Age: 44 Year
  Sex: Male
  Weight: 88 kg

DRUGS (6)
  1. CRESTOR [Suspect]
     Indication: HYPERCHOLESTEROLAEMIA
     Route: 048
     Dates: start: 2011
  2. ATENOLOL [Suspect]
     Route: 048
     Dates: start: 2007
  3. PANTOPRAZOLE [Concomitant]
     Route: 048
     Dates: start: 2007
  4. CIPROFLOXACIN [Concomitant]
     Route: 048
     Dates: start: 2007
  5. ASA [Concomitant]
     Route: 048
     Dates: start: 2007
  6. PAROXETINE [Concomitant]
     Route: 048
     Dates: start: 2007

REACTIONS (8)
  - Myocardial infarction [Recovered/Resolved]
  - Sepsis [Recovered/Resolved]
  - Urinary tract infection [Recovered/Resolved]
  - Liver abscess [Recovered/Resolved]
  - Bacteraemia [Unknown]
  - Tremor [Unknown]
  - Sepsis [Recovered/Resolved]
  - Blood cholesterol increased [Unknown]
